FAERS Safety Report 25259903 (Version 1)
Quarter: 2025Q2

REPORT INFORMATION
  Report Type: Spontaneous
  Country: CA (occurrence: CA)
  Receive Date: 20250501
  Receipt Date: 20250501
  Transmission Date: 20250716
  Serious: Yes (Disabling)
  Sender: PFIZER
  Company Number: CA-PFIZER INC-202500091356

PATIENT
  Age: 52 Year
  Sex: Female
  Weight: 71 kg

DRUGS (2)
  1. HYDROCORTISONE [Suspect]
     Active Substance: HYDROCORTISONE
     Indication: Addison^s disease
     Dosage: 20 MG, 1X/DAY
     Route: 048
  2. HYDROCORTISONE [Suspect]
     Active Substance: HYDROCORTISONE
     Dosage: 10 MG, 1X/DAY
     Route: 048

REACTIONS (2)
  - Abdominal discomfort [Recovered/Resolved]
  - Diarrhoea [Recovered/Resolved]
